FAERS Safety Report 14371492 (Version 1)
Quarter: 2018Q1

REPORT INFORMATION
  Report Type: Report from Study
  Country: DE (occurrence: DE)
  Receive Date: 20180110
  Receipt Date: 20180110
  Transmission Date: 20180509
  Serious: Yes (Death)
  Sender: FDA-Public Use
  Company Number: DE-VIFOR (INTERNATIONAL) INC.-VIT-2017-08327

PATIENT
  Sex: Female
  Weight: 55.2 kg

DRUGS (23)
  1. VELPHORO [Suspect]
     Active Substance: FERRIC OXYHYDROXIDE
     Dates: start: 20170814
  2. EPOETIN ALFA [Concomitant]
     Active Substance: ERYTHROPOIETIN
     Dates: start: 20170802, end: 20170920
  3. EPOETIN ALFA [Concomitant]
     Active Substance: ERYTHROPOIETIN
     Dates: start: 20171124
  4. DEKRISTOL [Concomitant]
     Active Substance: CHOLECALCIFEROL
     Indication: VITAMIN D DEFICIENCY
     Dates: start: 20161019, end: 20161230
  5. DEKRISTOL [Concomitant]
     Active Substance: CHOLECALCIFEROL
     Dates: start: 20171013
  6. EPOETIN ALFA [Concomitant]
     Active Substance: ERYTHROPOIETIN
     Indication: NEPHROGENIC ANAEMIA
     Dates: start: 20170412, end: 20170421
  7. VELPHORO [Suspect]
     Active Substance: FERRIC OXYHYDROXIDE
     Indication: HYPERPHOSPHATAEMIA
     Route: 048
     Dates: start: 20170621, end: 20170807
  8. CLEXANE [Concomitant]
     Active Substance: ENOXAPARIN SODIUM
     Indication: PROPHYLAXIS
     Dates: start: 20170315, end: 20170412
  9. EPOETIN ALFA [Concomitant]
     Active Substance: ERYTHROPOIETIN
     Dates: start: 20170920, end: 20171124
  10. EPOETIN ALFA [Concomitant]
     Active Substance: ERYTHROPOIETIN
     Dates: start: 20161202, end: 20161230
  11. COSMOFER [Concomitant]
     Active Substance: IRON DEXTRAN
     Indication: NEPHROGENIC ANAEMIA
     Route: 042
     Dates: start: 20160907, end: 20170308
  12. RENAGEL [Concomitant]
     Active Substance: SEVELAMER HYDROCHLORIDE
     Indication: CHRONIC KIDNEY DISEASE
     Dates: start: 20170222, end: 20170412
  13. DEKRISTOL [Concomitant]
     Active Substance: CHOLECALCIFEROL
     Dates: start: 20170802, end: 20171013
  14. OSTEOTRIOL [Concomitant]
     Indication: CHRONIC KIDNEY DISEASE
     Dates: start: 20161230
  15. VELPHORO [Suspect]
     Active Substance: FERRIC OXYHYDROXIDE
     Dates: start: 20170913
  16. PANTOPRAZOLE SODIUM SESQUIHYDRATE [Concomitant]
     Active Substance: PANTOPRAZOLE SODIUM
     Indication: PROPHYLAXIS
     Dates: start: 20160518
  17. EPOETIN ALFA [Concomitant]
     Active Substance: ERYTHROPOIETIN
     Dates: start: 20170421, end: 20170726
  18. EPOETIN ALFA [Concomitant]
     Active Substance: ERYTHROPOIETIN
     Dates: start: 20161130, end: 20170308
  19. INNOHEP [Concomitant]
     Active Substance: TINZAPARIN SODIUM
     Dates: start: 20170215
  20. RENAGEL [Concomitant]
     Active Substance: SEVELAMER HYDROCHLORIDE
     Dates: start: 20170412
  21. PHENPROGAMMA [Concomitant]
     Active Substance: PHENPROCOUMON
     Indication: PROPHYLAXIS
     Dates: start: 20170220
  22. DEKRISTOL [Concomitant]
     Active Substance: CHOLECALCIFEROL
     Dates: start: 20161230, end: 20170802
  23. EPOETIN ALFA [Concomitant]
     Active Substance: ERYTHROPOIETIN
     Dates: start: 20170726, end: 20170802

REACTIONS (2)
  - Faeces discoloured [Not Recovered/Not Resolved]
  - Death [Fatal]

NARRATIVE: CASE EVENT DATE: 20170621
